FAERS Safety Report 5952238-X (Version None)
Quarter: 2008Q4

REPORT INFORMATION
  Report Type: 
  Country: None (occurrence: None)
  Receive Date: 20081113
  Receipt Date: 20081111
  Transmission Date: 20090506
  Serious: Yes (Hospitalization)
  Sender: FDA-Public Use
  Company Number: JP-WYE-H06386008

PATIENT
  Sex: Female

DRUGS (5)
  1. TAZOCIN [Suspect]
     Indication: PNEUMONIA
     Route: 041
     Dates: start: 20081008, end: 20081011
  2. ZITHROMAX [Concomitant]
     Route: 048
     Dates: start: 20081009, end: 20081010
  3. DEPAS [Concomitant]
     Route: 048
  4. LEVOTHYROXINE SODIUM [Concomitant]
     Route: 048
  5. EVISTA [Concomitant]
     Route: 048

REACTIONS (3)
  - ANORECTAL DISORDER [None]
  - DIARRHOEA [None]
  - FAECES DISCOLOURED [None]
